FAERS Safety Report 19381213 (Version 1)
Quarter: 2021Q2

REPORT INFORMATION
  Report Type: Report from Study
  Country: JP (occurrence: JP)
  Receive Date: 20210607
  Receipt Date: 20210607
  Transmission Date: 20210717
  Serious: Yes (Hospitalization)
  Sender: FDA-Public Use
  Company Number: JP-VIFOR (INTERNATIONAL) INC.-VIT-2018-02545

PATIENT
  Age: 63 Year
  Sex: Male
  Weight: 51 kg

DRUGS (20)
  1. FUROSEMIDE. [Concomitant]
     Active Substance: FUROSEMIDE
     Route: 048
  2. ATORVASTATIN [Concomitant]
     Active Substance: ATORVASTATIN
     Route: 048
  3. NESP [Concomitant]
     Active Substance: DARBEPOETIN ALFA
     Dates: start: 20180110, end: 20180117
  4. NESP [Concomitant]
     Active Substance: DARBEPOETIN ALFA
     Dates: start: 20160309, end: 20160621
  5. ROCALTROL [Concomitant]
     Active Substance: CALCITRIOL
     Dosage: 1 (UNIT UNKNOWN)
     Dates: start: 20160608
  6. VELPHORO [Suspect]
     Active Substance: SUCROFERRIC OXYHYDROXIDE
     Route: 048
     Dates: start: 20160610, end: 20160623
  7. VELPHORO [Suspect]
     Active Substance: SUCROFERRIC OXYHYDROXIDE
     Route: 048
     Dates: start: 20160624
  8. CALTAN [Concomitant]
     Active Substance: CALCIUM CARBONATE
     Indication: HYPERPHOSPHATAEMIA
     Route: 048
  9. NESP [Concomitant]
     Active Substance: DARBEPOETIN ALFA
     Dates: start: 20170825, end: 20171207
  10. NESP [Concomitant]
     Active Substance: DARBEPOETIN ALFA
     Dates: start: 20180126
  11. FESIN [Concomitant]
     Dates: start: 20160511, end: 20160803
  12. VELPHORO [Suspect]
     Active Substance: SUCROFERRIC OXYHYDROXIDE
     Indication: HYPERPHOSPHATAEMIA
     Route: 048
     Dates: start: 20160528, end: 20160609
  13. ROCALTROL [Concomitant]
     Active Substance: CALCITRIOL
     Indication: HYPERPHOSPHATAEMIA
     Dosage: 0.5X2 ONCE WEEKLY
     Dates: start: 20160511, end: 20160607
  14. AMLODIN [Concomitant]
     Active Substance: AMLODIPINE BESYLATE
     Route: 048
     Dates: end: 20160708
  15. NESP [Concomitant]
     Active Substance: DARBEPOETIN ALFA
     Dates: start: 20170802, end: 20170824
  16. ACTONEL [Concomitant]
     Active Substance: RISEDRONATE SODIUM
     Route: 048
     Dates: start: 20171016
  17. BLOPRESS [Concomitant]
     Active Substance: CANDESARTAN CILEXETIL
     Route: 048
     Dates: end: 20160617
  18. BLOPRESS [Concomitant]
     Active Substance: CANDESARTAN CILEXETIL
     Route: 048
     Dates: start: 20171013, end: 20180126
  19. NESP [Concomitant]
     Active Substance: DARBEPOETIN ALFA
     Dates: start: 20160622, end: 20160704
  20. NESP [Concomitant]
     Active Substance: DARBEPOETIN ALFA
     Dates: end: 20170623

REACTIONS (4)
  - Hyperphosphataemia [Recovering/Resolving]
  - Intestinal obstruction [Recovered/Resolved]
  - Blood parathyroid hormone increased [Not Recovered/Not Resolved]
  - Condition aggravated [Recovering/Resolving]

NARRATIVE: CASE EVENT DATE: 20160606
